FAERS Safety Report 8823831 (Version 1)
Quarter: 2012Q4

REPORT INFORMATION
  Report Type: 
  Country: GB (occurrence: GB)
  Receive Date: 20121003
  Receipt Date: 20121003
  Transmission Date: 20130627
  Serious: Yes (Hospitalization)
  Sender: FDA-Public Use
  Company Number: GB-PFIZER INC-2012241321

PATIENT
  Age: 45 Year
  Sex: Male
  Weight: 91.8 kg

DRUGS (9)
  1. GENOTROPIN [Suspect]
     Indication: GROWTH HORMONE DEFICIENCY
     Dosage: 0.67 mg/day, 7 injections/week
     Route: 058
     Dates: start: 20000112
  2. DESMOPRESSIN [Concomitant]
     Indication: BLOOD ANTIDIURETIC HORMONE DECREASED
     Dosage: UNK
     Dates: start: 19761115
  3. LEVOTHYROXINE [Concomitant]
     Indication: BLOOD THYROID STIMULATING HORMONE DECREASED
     Dosage: UNK
     Dates: start: 19780928
  4. LEVOTHYROXINE [Concomitant]
     Indication: PRIMARY HYPOTHYROIDISM
  5. TESTOSTERONE [Concomitant]
     Indication: BLOOD LUTEINISING HORMONE DECREASED
     Dosage: UNK
     Dates: start: 19810427
  6. TESTOSTERONE [Concomitant]
     Indication: BLOOD FOLLICLE STIMULATING HORMONE DECREASED
  7. TESTOSTERONE [Concomitant]
     Indication: HYPOGONADISM MALE
  8. CORTISONE ACETATE [Concomitant]
     Indication: BLOOD CORTICOTROPHIN DECREASED
     Dosage: UNK
     Dates: start: 19940823
  9. OMEPRAZOLE [Concomitant]
     Indication: EPIGASTRIC DISCOMFORT
     Dosage: UNK
     Dates: start: 19980115

REACTIONS (1)
  - Convulsion [Unknown]
